FAERS Safety Report 8956409 (Version 2)
Quarter: 2012Q4

REPORT INFORMATION
  Report Type: Report from Study
  Country: HU (occurrence: HU)
  Receive Date: 20121210
  Receipt Date: 20121214
  Transmission Date: 20130627
  Serious: Yes (Hospitalization)
  Sender: FDA-Public Use
  Company Number: HU-ASTRAZENECA-2012SE91224

PATIENT
  Age: 21976 Day
  Sex: Male

DRUGS (8)
  1. AZD6140 [Suspect]
     Indication: CORONARY ARTERY DISEASE
     Route: 048
     Dates: start: 20120719, end: 20121126
  2. ASA [Suspect]
     Route: 048
  3. TRIMETAZIDINE [Concomitant]
     Indication: ANGINA PECTORIS
     Route: 048
  4. ISOSORBIDE MONONITRATE [Concomitant]
     Indication: ANGINA PECTORIS
     Route: 048
  5. NEBIVOLOL [Concomitant]
     Indication: HYPERTENSION
     Route: 048
  6. ATORVASTATIN [Concomitant]
     Indication: HYPERCHOLESTEROLAEMIA
     Route: 048
  7. PERINDOPRIL [Concomitant]
     Indication: HYPERTENSION
     Route: 048
  8. MILURIT [Concomitant]
     Indication: HYPERURICAEMIA
     Route: 048

REACTIONS (2)
  - Duodenal ulcer [Recovered/Resolved]
  - Intervertebral disc protrusion [Not Recovered/Not Resolved]
